FAERS Safety Report 4489027-1 (Version None)
Quarter: 2004Q4

REPORT INFORMATION
  Report Type: 
  Country: None (occurrence: None)
  Receive Date: 20041026
  Receipt Date: 20041008
  Transmission Date: 20050328
  Serious: Yes (Hospitalization)
  Sender: FDA-Public Use
  Company Number: CA_041007323

PATIENT
  Age: 97 Year
  Sex: Female

DRUGS (3)
  1. ZYPREXA [Suspect]
     Dosage: 7.5 MG AT BEDTIME
     Dates: start: 20040920, end: 20041008
  2. HALDOL [Concomitant]
  3. SERAX [Concomitant]

REACTIONS (5)
  - ABASIA [None]
  - DEMENTIA [None]
  - DYSARTHRIA [None]
  - HYPERSOMNIA [None]
  - MEMORY IMPAIRMENT [None]
